FAERS Safety Report 24461673 (Version 4)
Quarter: 2025Q4

REPORT INFORMATION
  Report Type: Spontaneous
  Country: US (occurrence: US)
  Receive Date: 20241018
  Receipt Date: 20251030
  Transmission Date: 20260118
  Serious: No
  Sender: UCB
  Company Number: US-UCBSA-2024035673

PATIENT
  Age: 71 Year
  Weight: 99.773 kg

DRUGS (1)
  1. BIMZELX [Suspect]
     Active Substance: BIMEKIZUMAB-BKZX
     Indication: Psoriasis
     Dosage: 320 MILLIGRAM, EV 4 WEEKS (INJECT 320MG (2 PENS) SUBCUTANEOUSLY AT WEEKS 0, 4, 8, 12 AND 16 AS DIRECTED)

REACTIONS (3)
  - Arthralgia [Recovered/Resolved]
  - Product availability issue [Unknown]
  - Product dose omission issue [Unknown]
